FAERS Safety Report 7398316-2 (Version None)
Quarter: 2011Q2

REPORT INFORMATION
  Report Type: 
  Country: None (occurrence: None)
  Receive Date: 20110406
  Receipt Date: 20110325
  Transmission Date: 20111010
  Serious: Yes (Hospitalization, Other)
  Sender: FDA-Public Use
  Company Number: US-ELI_LILLY_AND_COMPANY-US201006001076

PATIENT
  Sex: Female

DRUGS (10)
  1. FORTEO [Suspect]
     Indication: OSTEOPOROSIS
     Dosage: 20 UG, DAILY (1/D)
     Dates: start: 20100501
  2. FORTEO [Suspect]
     Dosage: 20 UG, DAILY (1/D)
  3. CALTRATE 600 + D [Concomitant]
     Dosage: UNK, 2/D
  4. PANTOPRAZOLE [Concomitant]
     Dosage: 40 MG, 2/D
  5. VITAMIN D [Concomitant]
     Dosage: UNK, DAILY (1/D)
  6. CILOSTAZOL [Concomitant]
     Dosage: 100 MG, 2/D
  7. HYDROCHLOROTHIAZIDE [Concomitant]
     Dosage: 12.5 MG, DAILY (1/D)
  8. ZILACTIN [Concomitant]
     Dosage: 0.5 MG, DAILY (1/D)
  9. SYNTHROID [Concomitant]
     Dosage: 0.112 MG, DAILY (1/D)
  10. ASPIRIN [Concomitant]

REACTIONS (8)
  - FAMILY STRESS [None]
  - STRESS [None]
  - PULSE ABSENT [None]
  - PRURITUS [None]
  - MYOCARDIAL INFARCTION [None]
  - VENOUS OCCLUSION [None]
  - CARDIAC MURMUR [None]
  - COUGH [None]
